FAERS Safety Report 4848473-4 (Version None)
Quarter: 2005Q4

REPORT INFORMATION
  Report Type: 
  Country: None (occurrence: None)
  Receive Date: 20051208
  Receipt Date: 20051130
  Transmission Date: 20060501
  Serious: Yes (Hospitalization)
  Sender: FDA-Public Use
  Company Number: FR-AVENTIS-200513942FR

PATIENT
  Age: 71 Year
  Sex: Male

DRUGS (6)
  1. TAXOTERE [Suspect]
     Indication: PROSTATE CANCER
     Route: 042
     Dates: start: 20050725, end: 20050725
  2. TAHOR [Concomitant]
  3. KARDEGIC [Concomitant]
  4. BI-TILDIEM [Concomitant]
  5. ZOLADEX [Concomitant]
     Dates: start: 20050712, end: 20050712
  6. CASODEX [Concomitant]
     Dates: start: 20050704, end: 20050704

REACTIONS (4)
  - ABDOMINAL PAIN [None]
  - ANORECTAL DISORDER [None]
  - DEHYDRATION [None]
  - DYSURIA [None]
